FAERS Safety Report 4625448-1 (Version None)
Quarter: 2005Q2

REPORT INFORMATION
  Report Type: 
  Country: None (occurrence: None)
  Receive Date: 20050401
  Receipt Date: 20050322
  Transmission Date: 20051028
  Serious: Yes (Other)
  Sender: FDA-Public Use
  Company Number: ES-BOEHRINGER INGELHEIM PHARMACEUTICALS, INC.-2005-DE-01198GD

PATIENT
  Age: 54 Year
  Sex: Male

DRUGS (2)
  1. NAPROXEN [Suspect]
     Route: 048
  2. IBUPROFEN [Suspect]
     Route: 048

REACTIONS (3)
  - DYSPNOEA [None]
  - LARYNGEAL OEDEMA [None]
  - URTICARIA [None]
